FAERS Safety Report 4796610-2 (Version None)
Quarter: 2005Q4

REPORT INFORMATION
  Report Type: 
  Country: None (occurrence: None)
  Receive Date: 20051007
  Receipt Date: 20050922
  Transmission Date: 20060501
  Serious: Yes (Other)
  Sender: FDA-Public Use
  Company Number: 2005-0008720

PATIENT
  Age: 47 Year
  Sex: Male

DRUGS (5)
  1. VIREAD [Suspect]
     Indication: ACQUIRED IMMUNODEFICIENCY SYNDROME
     Dosage: 300 MG, 1 IN 1 D
     Dates: start: 20020201, end: 20040301
  2. DIDANOSINE [Concomitant]
  3. LAMIVUDINE [Concomitant]
  4. LOPINAVIR W/RITONAVIR (KALETRA) [Concomitant]
  5. IMIDAPRIL (IMIDAPRIL) [Concomitant]

REACTIONS (17)
  - BLOOD ALKALINE PHOSPHATASE INCREASED [None]
  - BLOOD CREATININE INCREASED [None]
  - BLOOD POTASSIUM DECREASED [None]
  - BONE SCAN ABNORMAL [None]
  - DRUG INTERACTION [None]
  - GLUCOSE TOLERANCE IMPAIRED [None]
  - GLYCOSURIA [None]
  - HYPOPHOSPHATAEMIA [None]
  - LIPODYSTROPHY ACQUIRED [None]
  - OSTEOMALACIA [None]
  - OSTEOPENIA [None]
  - PAIN IN EXTREMITY [None]
  - PITUITARY TUMOUR BENIGN [None]
  - PROTEINURIA [None]
  - REFUSAL OF TREATMENT BY PATIENT [None]
  - RENAL IMPAIRMENT [None]
  - SECONDARY HYPOGONADISM [None]
